FAERS Safety Report 23978918 (Version 1)
Quarter: 2024Q2

REPORT INFORMATION
  Report Type: Report from Study
  Country: US (occurrence: US)
  Receive Date: 20240615
  Receipt Date: 20240615
  Transmission Date: 20240716
  Serious: Yes (Hospitalization, Other)
  Sender: FDA-Public Use
  Company Number: US-UCBSA-2024027995

PATIENT
  Age: 58 Year
  Sex: Male

DRUGS (1)
  1. BIMEKIZUMAB [Suspect]
     Active Substance: BIMEKIZUMAB
     Indication: Psoriasis
     Dosage: 320 MILLIGRAM, EV 4 WEEKS
     Dates: start: 20240313, end: 20240501

REACTIONS (7)
  - Anal abscess [Recovering/Resolving]
  - Debridement [Recovering/Resolving]
  - Infection [Recovering/Resolving]
  - Fistula [Recovering/Resolving]
  - Colon operation [Recovering/Resolving]
  - Drain placement [Recovering/Resolving]
  - Abscess [Unknown]

NARRATIVE: CASE EVENT DATE: 20240421
